FAERS Safety Report 12718075 (Version 5)
Quarter: 2016Q4

REPORT INFORMATION
  Report Type: Report from Study
  Country: US (occurrence: US)
  Receive Date: 20160906
  Receipt Date: 20161103
  Transmission Date: 20170207
  Serious: Yes (Death, Hospitalization, Other)
  Sender: FDA-Public Use
  Company Number: US-009507513-1609USA000259

PATIENT
  Age: 54 Year
  Sex: Male

DRUGS (2)
  1. PEMBROLIZUMAB. [Suspect]
     Active Substance: PEMBROLIZUMAB
     Indication: NON-SMALL CELL LUNG CANCER
     Dosage: EVERY THREE WEEKS
     Route: 042
     Dates: start: 20160729
  2. LOVENOX [Concomitant]
     Active Substance: ENOXAPARIN SODIUM
     Indication: ANTICOAGULANT THERAPY
     Dosage: UNK
     Dates: end: 2016

REACTIONS (16)
  - Malignant neoplasm progression [Unknown]
  - Epistaxis [Unknown]
  - Hypoaesthesia [Unknown]
  - Cough [Unknown]
  - Death [Fatal]
  - Lymphadenopathy [Unknown]
  - Drug dose omission [Unknown]
  - Pneumonia [Unknown]
  - Muscle spasms [Unknown]
  - Thoracic haemorrhage [Unknown]
  - Pneumonitis [Unknown]
  - Pulmonary embolism [Unknown]
  - Blood calcium decreased [Unknown]
  - Oedema [Unknown]
  - Catheter site erythema [Unknown]
  - Musculoskeletal stiffness [Unknown]

NARRATIVE: CASE EVENT DATE: 2016
